FAERS Safety Report 18122078 (Version 1)
Quarter: 2020Q3

REPORT INFORMATION
  Report Type: Spontaneous
  Country: IT (occurrence: IT)
  Receive Date: 20200807
  Receipt Date: 20200807
  Transmission Date: 20201103
  Serious: Yes (Other)
  Sender: FDA-Public Use
  Company Number: IT-ACCORD-194200

PATIENT
  Age: 46 Year
  Sex: Male

DRUGS (9)
  1. CRESTOR [Concomitant]
     Active Substance: ROSUVASTATIN CALCIUM
  2. NURABEN [Concomitant]
  3. LEVETIRACETAM. [Suspect]
     Active Substance: LEVETIRACETAM
     Indication: EPILEPSY
     Route: 048
     Dates: start: 20200702, end: 20200713
  4. TAVOR [Concomitant]
  5. CLOPIDOGREL [Concomitant]
     Active Substance: CLOPIDOGREL BISULFATE
  6. FOLINIC ACID [Concomitant]
     Active Substance: LEUCOVORIN
  7. SEACOR [Concomitant]
     Active Substance: OMEGA-3 FATTY ACIDS
  8. ESOMEPRAZOLE/ESOMEPRAZOLE MAGNESIUM/ESOMEPRAZOLE SODIUM [Concomitant]
     Active Substance: ESOMEPRAZOLE
  9. CARDICOR [Concomitant]
     Active Substance: BISOPROLOL

REACTIONS (3)
  - Depressed level of consciousness [Recovered/Resolved]
  - Tremor [Recovered/Resolved]
  - Malaise [Recovered/Resolved]

NARRATIVE: CASE EVENT DATE: 20200702
